FAERS Safety Report 7322491-9 (Version None)
Quarter: 2011Q1

REPORT INFORMATION
  Report Type: 
  Country: None (occurrence: None)
  Receive Date: 20110301
  Receipt Date: 20100907
  Transmission Date: 20110831
  Serious: Yes (Other)
  Sender: FDA-Public Use
  Company Number: US-BAYER-201013480NA

PATIENT
  Sex: Female
  Weight: 90.909 kg

DRUGS (5)
  1. YAZ [Suspect]
     Indication: PRODUCT USED FOR UNKNOWN INDICATION
  2. AVELOX [Concomitant]
     Dosage: UNK
     Dates: start: 20051001
  3. YASMIN [Suspect]
     Indication: PRODUCT USED FOR UNKNOWN INDICATION
     Dates: start: 20000101, end: 20060101
  4. ALBUTEROL [Concomitant]
     Dosage: UNK
     Dates: start: 20041101, end: 20061001
  5. OMNICEF [Concomitant]
     Dosage: UNK
     Dates: start: 20060301

REACTIONS (4)
  - CHOLELITHIASIS [None]
  - ABDOMINAL PAIN UPPER [None]
  - CHOLECYSTITIS CHRONIC [None]
  - ABDOMINAL DISTENSION [None]
